FAERS Safety Report 13717549 (Version 1)
Quarter: 2017Q3

REPORT INFORMATION
  Report Type: Spontaneous
  Country: US (occurrence: US)
  Receive Date: 20170703
  Receipt Date: 20170703
  Transmission Date: 20171127
  Serious: No
  Sender: FDA-Public Use
  Company Number: None

PATIENT
  Age: 60 Year
  Sex: Female

DRUGS (2)
  1. HUMIRA [Suspect]
     Active Substance: ADALIMUMAB
     Indication: PSORIATIC ARTHROPATHY
     Dosage: 40MG/0.8ML, INJECT 1 PEN SUBQ EVERY OTHER WEEK
     Route: 058
     Dates: start: 20070630
  2. HUMIRA [Suspect]
     Active Substance: ADALIMUMAB
     Indication: PSORIASIS
     Dosage: 40MG/0.8ML, INJECT 1 PEN SUBQ EVERY OTHER WEEK
     Route: 058
     Dates: start: 20070630

REACTIONS (4)
  - Therapy non-responder [None]
  - Pain in extremity [None]
  - Myalgia [None]
  - Fatigue [None]

NARRATIVE: CASE EVENT DATE: 20161116
